FAERS Safety Report 6247795-2 (Version None)
Quarter: 2009Q2

REPORT INFORMATION
  Report Type: 
  Country: None (occurrence: None)
  Receive Date: 20090626
  Receipt Date: 20090625
  Transmission Date: 20091009
  Serious: Yes (Other)
  Sender: FDA-Public Use
  Company Number: BR-BAYER-200710970LA

PATIENT
  Age: 29 Year
  Sex: Male

DRUGS (1)
  1. LEVITRA [Suspect]
     Indication: ERECTILE DYSFUNCTION
     Dosage: 5 DOSES
     Route: 048
     Dates: start: 20050101

REACTIONS (2)
  - DEAFNESS UNILATERAL [None]
  - HEADACHE [None]
